FAERS Safety Report 5927415-4 (Version None)
Quarter: 2008Q4

REPORT INFORMATION
  Report Type: 
  Country: None (occurrence: None)
  Receive Date: 20081021
  Receipt Date: 20081021
  Transmission Date: 20090506
  Serious: Yes (Hospitalization)
  Sender: FDA-Public Use
  Company Number: None

PATIENT
  Sex: Female
  Weight: 65.7716 kg

DRUGS (1)
  1. RECLAST [Suspect]
     Indication: OSTEOPOROSIS POSTMENOPAUSAL
     Dosage: 5 MG ONCE A YEAR IV
     Route: 042
     Dates: start: 20081016

REACTIONS (5)
  - BONE PAIN [None]
  - HYPOKALAEMIA [None]
  - MYALGIA [None]
  - PAIN [None]
  - PYREXIA [None]
